FAERS Safety Report 9339333 (Version 2)
Quarter: 2013Q3

REPORT INFORMATION
  Report Type: Spontaneous
  Country: FR (occurrence: FR)
  Receive Date: 20130610
  Receipt Date: 20130723
  Transmission Date: 20140515
  Serious: Yes (Other)
  Sender: FDA-Public Use
  Company Number: FR-UCBSA-087487

PATIENT
  Age: 45 Year
  Sex: Female
  Weight: 40 kg

DRUGS (2)
  1. CIMZIA [Suspect]
     Indication: CROHN^S DISEASE
     Route: 058
     Dates: start: 20130410, end: 20130523
  2. HUMIRA [Concomitant]
     Indication: CROHN^S DISEASE
     Dates: start: 201105, end: 201304

REACTIONS (4)
  - Lupus-like syndrome [Recovered/Resolved]
  - Arthralgia [Not Recovered/Not Resolved]
  - Burning sensation [Unknown]
  - Inappropriate schedule of drug administration [Unknown]
